FAERS Safety Report 6054030-7 (Version None)
Quarter: 2009Q1

REPORT INFORMATION
  Report Type: 
  Country: None (occurrence: None)
  Receive Date: 20090127
  Receipt Date: 20090126
  Transmission Date: 20090719
  Serious: Yes (Hospitalization)
  Sender: FDA-Public Use
  Company Number: US-KINGPHARMUSA00001-K200900079

PATIENT
  Age: 53 Year
  Sex: Male

DRUGS (10)
  1. ALTACE [Suspect]
     Indication: HYPERTENSION
     Dosage: 1.25 MG, QD
     Route: 048
     Dates: start: 20081121, end: 20081209
  2. TAHOR [Suspect]
     Indication: HYPERCHOLESTEROLAEMIA
     Dosage: 80 MG, QD
     Route: 048
     Dates: end: 20081204
  3. MIFLONIL [Concomitant]
     Indication: ASTHMA
     Dosage: UNK
     Route: 049
     Dates: end: 20081204
  4. KARDEGIC                           /00002703/ [Concomitant]
  5. INEXIUM                            /01479302/ [Concomitant]
  6. SPIRIVA [Concomitant]
  7. FORADIL                            /00958001/ [Concomitant]
  8. PLAVIX [Concomitant]
     Dosage: UNK
     Dates: start: 20081105
  9. PROCORALAN [Concomitant]
     Dosage: UNK
     Dates: start: 20081105
  10. FOZITEC                            /00915301/ [Concomitant]
     Dosage: UNK
     Dates: end: 20081121

REACTIONS (2)
  - CHOLESTASIS [None]
  - HEPATITIS [None]
